FAERS Safety Report 5646344-7 (Version None)
Quarter: 2008Q1

REPORT INFORMATION
  Report Type: 
  Country: None (occurrence: None)
  Receive Date: 20080303
  Receipt Date: 20080221
  Transmission Date: 20080703
  Serious: Yes (Other)
  Sender: FDA-Public Use
  Company Number: GB-JNJFOC-20080205201

PATIENT
  Age: 52 Year
  Sex: Male

DRUGS (1)
  1. FENTANYL [Suspect]
     Indication: ANALGESIA
     Route: 062

REACTIONS (2)
  - ERYTHEMA [None]
  - HYPERHIDROSIS [None]
